FAERS Safety Report 13500539 (Version 2)
Quarter: 2017Q2

REPORT INFORMATION
  Report Type: Spontaneous
  Country: US (occurrence: US)
  Receive Date: 20170501
  Receipt Date: 20170626
  Transmission Date: 20170830
  Serious: Yes (Hospitalization, Other)
  Sender: FDA-Public Use
  Company Number: US-009507513-1704USA014287

PATIENT
  Sex: Female
  Weight: 80.6 kg

DRUGS (4)
  1. PROBIOTICS (UNSPECIFIED) [Concomitant]
     Active Substance: PROBIOTICS NOS
     Dosage: 1 DF, QD
     Route: 048
  2. NUVARING [Suspect]
     Active Substance: ETHINYL ESTRADIOL\ETONOGESTREL
     Indication: CONTRACEPTION
     Dosage: ^1 EACH, VAGINAL, Q 4 WEEKS^
     Route: 067
     Dates: start: 201401, end: 20140516
  3. OMEGA-3 MARINE TRIGLYCERIDES [Concomitant]
     Active Substance: FISH OIL
     Dosage: 1 DF, QD
     Route: 048
  4. XANAX [Concomitant]
     Active Substance: ALPRAZOLAM
     Dosage: 0.5 MG, HS
     Route: 048

REACTIONS (6)
  - Solar lentigo [Unknown]
  - Depression [Unknown]
  - Pulmonary embolism [Unknown]
  - Diverticulum [Unknown]
  - Anxiety [Unknown]
  - Irritable bowel syndrome [Unknown]

NARRATIVE: CASE EVENT DATE: 20140514
